FAERS Safety Report 5475176-8 (Version None)
Quarter: 2007Q4

REPORT INFORMATION
  Report Type: 
  Country: None (occurrence: None)
  Receive Date: 20071002
  Receipt Date: 20070920
  Transmission Date: 20080405
  Serious: Yes (Hospitalization)
  Sender: FDA-Public Use
  Company Number: US-PFIZER INC-2007078210

PATIENT
  Sex: Male
  Weight: 50 kg

DRUGS (7)
  1. SUTENT [Suspect]
     Indication: GASTROINTESTINAL STROMAL TUMOUR
     Route: 048
  2. CLONIDINE [Concomitant]
     Route: 048
  3. PERCOCET [Concomitant]
     Dosage: TEXT:10/650 1-2 Q 4-6
     Route: 048
     Dates: start: 20070712
  4. LABETALOL [Concomitant]
     Route: 048
     Dates: start: 20070123
  5. HYDROCHLOROTHIAZIDE [Concomitant]
     Route: 048
     Dates: start: 20070123
  6. ALTACE [Concomitant]
     Route: 048
     Dates: start: 20070123
  7. LEVAQUIN [Concomitant]
     Route: 048
     Dates: start: 20070823, end: 20070829

REACTIONS (2)
  - HYPERTENSION [None]
  - SYNCOPE [None]
